FAERS Safety Report 5619480-9 (Version None)
Quarter: 2008Q1

REPORT INFORMATION
  Report Type: 
  Country: None (occurrence: None)
  Receive Date: 20080114
  Receipt Date: 20070501
  Transmission Date: 20080703
  Serious: Yes (Other)
  Sender: FDA-Public Use
  Company Number: FEI2007-0734

PATIENT
  Age: 24 Year
  Sex: Female

DRUGS (1)
  1. PARAGARD T 380A [Suspect]
     Indication: CONTRACEPTION
     Dosage: INTRA-UTERINE
     Route: 015
     Dates: start: 20070307, end: 20070405

REACTIONS (6)
  - IUCD COMPLICATION [None]
  - IUD MIGRATION [None]
  - PAIN [None]
  - UTERINE HAEMORRHAGE [None]
  - UTERINE INFECTION [None]
  - UTERINE INJURY [None]
